APPROVED DRUG PRODUCT: ACETAZOLAMIDE
Active Ingredient: ACETAZOLAMIDE
Strength: 125MG
Dosage Form/Route: TABLET;ORAL
Application: A089753 | Product #002
Applicant: SUN PHARMACEUTICAL INDUSTRIES INC
Approved: Jun 22, 1988 | RLD: No | RS: No | Type: DISCN